FAERS Safety Report 21816996 (Version 4)
Quarter: 2023Q1

REPORT INFORMATION
  Report Type: Spontaneous
  Country: FR (occurrence: FR)
  Receive Date: 20230104
  Receipt Date: 20230217
  Transmission Date: 20230418
  Serious: Yes (Life-Threatening, Hospitalization, Disabling, Other)
  Sender: FDA-Public Use
  Company Number: FR-Atnahs Limited-ATNAHS20221212910

PATIENT
  Age: 1 Year
  Sex: Male
  Weight: 9.7 kg

DRUGS (9)
  1. DIAZEPAM [Suspect]
     Active Substance: DIAZEPAM
     Indication: Status epilepticus
     Dosage: 3 DOSES
  2. DILANTIN [Suspect]
     Active Substance: PHENYTOIN
     Indication: Generalised tonic-clonic seizure
     Dosage: 15 MG/LG OVER 30 MINUTES
     Route: 050
  3. DILANTIN [Suspect]
     Active Substance: PHENYTOIN
     Dosage: 5 MG/KG/H AS MAINTENANCE DOSE.
     Route: 050
  4. DILANTIN [Suspect]
     Active Substance: PHENYTOIN
     Dosage: 175 MG
     Dates: start: 20190202, end: 20190202
  5. CLONAZEPAM [Suspect]
     Active Substance: CLONAZEPAM
     Indication: Status epilepticus
  6. PHENOBARBITAL [Suspect]
     Active Substance: PHENOBARBITAL
     Indication: Status epilepticus
     Route: 050
  7. EPINEPHRINE [Suspect]
     Active Substance: EPINEPHRINE
     Indication: Product used for unknown indication
     Dosage: 2.3 MICRO/KG/MIN
  8. NOREPINEPHRINE [Suspect]
     Active Substance: NOREPINEPHRINE
     Indication: Cardiogenic shock
     Dosage: 4.7 MICROG/KG/MIN
     Route: 050
  9. MILRINONE [Suspect]
     Active Substance: MILRINONE
     Indication: Cardiogenic shock
     Dosage: 0.7 MICROG/KG/MIN
     Route: 050

REACTIONS (17)
  - Therapeutic product ineffective [Recovered/Resolved]
  - Nystagmus [Recovered/Resolved]
  - Seizure [Recovered/Resolved]
  - Myoclonic epilepsy [Recovered/Resolved]
  - Coma [Recovered/Resolved]
  - Cardiogenic shock [Recovered/Resolved]
  - Toxicity to various agents [Recovered/Resolved]
  - Overdose [Recovered/Resolved]
  - Cerebral ataxia [Recovered/Resolved]
  - Mutism [Recovered/Resolved]
  - Cerebellar atrophy [Recovered/Resolved]
  - Condition aggravated [Recovered/Resolved]
  - Bradycardia [Recovered/Resolved]
  - Cerebellar haemorrhage [Recovered/Resolved with Sequelae]
  - Circulatory collapse [Recovered/Resolved]
  - Respiratory failure [Recovered/Resolved]
  - Vasoplegia syndrome [Recovered/Resolved]

NARRATIVE: CASE EVENT DATE: 20190101
